FAERS Safety Report 25500490 (Version 2)
Quarter: 2025Q3

REPORT INFORMATION
  Report Type: Spontaneous
  Country: JP (occurrence: JP)
  Receive Date: 20250701
  Receipt Date: 20250722
  Transmission Date: 20251021
  Serious: Yes (Hospitalization, Other)
  Sender: AMGEN
  Company Number: JP-AMGEN-JPNSP2025124682

PATIENT

DRUGS (1)
  1. BEVACIZUMAB [Suspect]
     Active Substance: BEVACIZUMAB
     Indication: Colon cancer metastatic
     Route: 065

REACTIONS (8)
  - Osteomyelitis [Unknown]
  - Otorrhoea [Unknown]
  - Cerebrospinal fluid leakage [Unknown]
  - Pneumocephalus [Unknown]
  - Meningitis [Unknown]
  - Necrosis [Unknown]
  - Osteonecrosis [Unknown]
  - Nervous system disorder [Unknown]
